FAERS Safety Report 16891474 (Version 1)
Quarter: 2019Q4

REPORT INFORMATION
  Report Type: Spontaneous
  Country: FR (occurrence: FR)
  Receive Date: 20191007
  Receipt Date: 20191007
  Transmission Date: 20200122
  Serious: Yes (Other)
  Sender: FDA-Public Use
  Company Number: FR-MYLANLABS-2019M1092174

PATIENT
  Sex: Female

DRUGS (2)
  1. EMTRICITABINE/TENOFOVIR/TENOFOVIR DISOPROXIL FUMARATE [Suspect]
     Active Substance: EMTRICITABINE\TENOFOVIR DISOPROXIL FUMARATE
     Indication: HIV INFECTION
     Dosage: UNK UNK, QD (200MG+245MG, QD)
  2. RALTEGRAVIR POTASSIUM [Suspect]
     Active Substance: RALTEGRAVIR POTASSIUM
     Indication: HIV INFECTION
     Dosage: 800 MILLIGRAM, QD (400 MG, BID)
     Route: 048

REACTIONS (2)
  - Blood HIV RNA increased [Unknown]
  - Therapeutic product effect decreased [Unknown]
